FAERS Safety Report 8593741 (Version 3)
Quarter: 2018Q4

REPORT INFORMATION
  Report Type: Spontaneous
  Country: BR (occurrence: BR)
  Receive Date: 20120604
  Receipt Date: 20181026
  Transmission Date: 20190205
  Serious: Yes (Hospitalization)
  Sender: FDA-Public Use
  Company Number: BR-PFIZER INC-2012131028

PATIENT
  Age: 48 Year
  Sex: Female

DRUGS (9)
  1. CONDROFLEX [Concomitant]
     Active Substance: CHONDROITIN SULFATE (BOVINE)\GLUCOSAMINE SULFATE
     Dosage: UNK
  2. EZETROL [Concomitant]
     Active Substance: EZETIMIBE
     Dosage: UNK
  3. FRONTAL [Suspect]
     Active Substance: ALPRAZOLAM
     Indication: HYPERTENSION
  4. OLMETEC ANLO [Concomitant]
     Active Substance: AMLODIPINE BESYLATE\OLMESARTAN MEDOXOMIL
     Dosage: UNK
  5. VIVACOR (CARVEDILOL) [Concomitant]
     Dosage: UNK
  6. FRONTAL XR [Suspect]
     Active Substance: ALPRAZOLAM
     Indication: HEADACHE
     Dosage: 0.5 MG (ONE TABLET), 1X/DAY (IN THE MORNING)
     Route: 048
     Dates: start: 2004
  7. FRONTAL XR [Suspect]
     Active Substance: ALPRAZOLAM
     Indication: HYPERTENSION
  8. FRONTAL [Suspect]
     Active Substance: ALPRAZOLAM
     Indication: HEADACHE
     Dosage: 0.5 MG (ONE TABLET), DAILY (AT NIGHT)
     Dates: start: 2004
  9. OLMETEC HCT [Concomitant]
     Active Substance: HYDROCHLOROTHIAZIDE\OLMESARTAN MEDOXOMIL
     Dosage: UNK

REACTIONS (2)
  - Cardiac ventricular disorder [Recovered/Resolved]
  - Product use in unapproved indication [Unknown]

NARRATIVE: CASE EVENT DATE: 2004
